FAERS Safety Report 7959651 (Version 2)
Quarter: 2012Q4

REPORT INFORMATION
  Report Type: 
  Country: US (occurrence: US)
  Receive Date: 20110525
  Receipt Date: 20121105
  Transmission Date: 20130627
  Serious: Yes (Other)
  Sender: FDA-Public Use
  Company Number: US-ASTRAZENECA-2011SE25223

PATIENT
  Age: 56 Year
  Sex: Male

DRUGS (3)
  1. SYMBICORT PMDI [Suspect]
     Indication: ASTHMA
     Dosage: 160/4.5, 2 PUFFS TWO TIMES A DAY
     Route: 055
  2. SYMBICORT PMDI [Suspect]
     Indication: CHRONIC OBSTRUCTIVE PULMONARY DISEASE
     Dosage: 160/4.5, 2 PUFFS TWO TIMES A DAY
     Route: 055
  3. ADVAIR [Suspect]
     Route: 065

REACTIONS (10)
  - Glioblastoma [Unknown]
  - Brain cancer metastatic [Unknown]
  - Convulsion [Unknown]
  - Cerebral artery embolism [Unknown]
  - Hepatic neoplasm [Unknown]
  - Pancreatic carcinoma [Unknown]
  - Dyspnoea [Unknown]
  - Chronic obstructive pulmonary disease [Unknown]
  - Arthritis [Unknown]
  - Drug dose omission [Unknown]
